FAERS Safety Report 5342405-0 (Version None)
Quarter: 2007Q2

REPORT INFORMATION
  Report Type: 
  Country: None (occurrence: None)
  Receive Date: 20070601
  Receipt Date: 20070524
  Transmission Date: 20071010
  Serious: Yes (Other)
  Sender: FDA-Public Use
  Company Number: DE-ROCHE-496470

PATIENT
  Age: 69 Year
  Sex: Female
  Weight: 70 kg

DRUGS (2)
  1. IBANDRONIC ACID [Suspect]
     Indication: OSTEOPOROSIS POSTMENOPAUSAL
     Route: 048
     Dates: start: 20070116, end: 20070417
  2. VOLTAREN [Concomitant]
     Dosage: DOSAGE REGIMEN REPORTED AS 2X1/DAY
     Route: 048

REACTIONS (2)
  - OEDEMA [None]
  - VISUAL ACUITY REDUCED [None]
